FAERS Safety Report 12576074 (Version 3)
Quarter: 2016Q4

REPORT INFORMATION
  Report Type: Report from Study
  Country: US (occurrence: US)
  Receive Date: 20160720
  Receipt Date: 20161222
  Transmission Date: 20170207
  Serious: Yes (Hospitalization, Other)
  Sender: FDA-Public Use
  Company Number: US-BIOGEN-2014BI008160

PATIENT
  Age: 47 Year
  Sex: Female

DRUGS (1)
  1. TYSABRI [Suspect]
     Active Substance: NATALIZUMAB
     Indication: MULTIPLE SCLEROSIS
     Route: 042
     Dates: start: 20080227

REACTIONS (8)
  - Gastrointestinal disorder [Recovered/Resolved]
  - Staphylococcal infection [Recovered/Resolved]
  - Renal failure [Not Recovered/Not Resolved]
  - Musculoskeletal disorder [Not Recovered/Not Resolved]
  - Nephrolithiasis [Recovered/Resolved]
  - Decubitus ulcer [Not Recovered/Not Resolved]
  - Central nervous system lesion [Not Recovered/Not Resolved]
  - Femur fracture [Recovered/Resolved]

NARRATIVE: CASE EVENT DATE: 20130113
